FAERS Safety Report 11927376 (Version 1)
Quarter: 2016Q1

REPORT INFORMATION
  Report Type: Spontaneous
  Country: US (occurrence: None)
  Receive Date: 20160115
  Receipt Date: 20160115
  Transmission Date: 20160526
  Serious: Yes (Hospitalization, Other)
  Sender: FDA-Public Use
  Company Number: None

PATIENT
  Age: 31 Year
  Sex: Female
  Weight: 54.43 kg

DRUGS (2)
  1. BUPRENORPHINE. [Concomitant]
     Active Substance: BUPRENORPHINE
  2. BUPRENORPHINE 8MG ACTAVIS ELIZABETH [Suspect]
     Active Substance: BUPRENORPHINE
     Indication: DRUG THERAPY
     Dosage: 2.5 , TAKEN UNDER THE TONGUE

REACTIONS (4)
  - Withdrawal syndrome [None]
  - Drug ineffective [None]
  - Product substitution issue [None]
  - Malaise [None]

NARRATIVE: CASE EVENT DATE: 20160114
